FAERS Safety Report 24942663 (Version 4)
Quarter: 2025Q1

REPORT INFORMATION
  Report Type: Spontaneous
  Country: US (occurrence: US)
  Receive Date: 20250207
  Receipt Date: 20250307
  Transmission Date: 20250409
  Serious: No
  Sender: SANOFI AVENTIS
  Company Number: US-SANOFI-02400538

PATIENT
  Age: 65 Year
  Sex: Female

DRUGS (2)
  1. LANTUS SOLOSTAR [Suspect]
     Active Substance: INSULIN GLARGINE
     Indication: Diabetes mellitus
     Dosage: 80 IU, QD
     Route: 065
  2. TRULICITY [Concomitant]
     Active Substance: DULAGLUTIDE

REACTIONS (3)
  - Blood glucose increased [Unknown]
  - Product dose omission issue [Unknown]
  - Device operational issue [Unknown]
